FAERS Safety Report 12637473 (Version 1)
Quarter: 2016Q3

REPORT INFORMATION
  Report Type: Spontaneous
  Country: US (occurrence: US)
  Receive Date: 20160809
  Receipt Date: 20160809
  Transmission Date: 20161109
  Serious: No
  Sender: FDA-Public Use
  Company Number: US-BEH-2016062850

PATIENT
  Age: 83 Year
  Sex: Female
  Weight: 54 kg

DRUGS (15)
  1. DIOVAN [Concomitant]
     Active Substance: VALSARTAN
  2. EPIPEN [Concomitant]
     Active Substance: EPINEPHRINE
  3. ATENOLOL. [Concomitant]
     Active Substance: ATENOLOL
  4. SODIUM CHLORIDE. [Concomitant]
     Active Substance: SODIUM CHLORIDE
  5. NASONEX [Concomitant]
     Active Substance: MOMETASONE FUROATE
  6. MUCINEX [Concomitant]
     Active Substance: GUAIFENESIN
  7. FOSAMAX [Concomitant]
     Active Substance: ALENDRONATE SODIUM
  8. VITAMIN C [Concomitant]
     Active Substance: ASCORBIC ACID
  9. LOPERAMIDE [Concomitant]
     Active Substance: LOPERAMIDE
  10. PRIVIGEN [Suspect]
     Active Substance: HUMAN IMMUNOGLOBULIN G
     Indication: SELECTIVE IGG SUBCLASS DEFICIENCY
     Route: 042
  11. PREDNISONE. [Concomitant]
     Active Substance: PREDNISONE
  12. SYMBICORT [Concomitant]
     Active Substance: BUDESONIDE\FORMOTEROL FUMARATE DIHYDRATE
  13. NORMAL SALINE [Concomitant]
     Active Substance: SODIUM CHLORIDE
  14. SYNTHROID [Concomitant]
     Active Substance: LEVOTHYROXINE SODIUM
  15. VITAMIN D [Concomitant]
     Active Substance: CHOLECALCIFEROL

REACTIONS (2)
  - Diarrhoea [Recovered/Resolved]
  - Gastrointestinal disorder [Recovered/Resolved]

NARRATIVE: CASE EVENT DATE: 20160327
